FAERS Safety Report 4938964-X (Version None)
Quarter: 2006Q1

REPORT INFORMATION
  Report Type: 
  Country: None (occurrence: None)
  Receive Date: 20060306
  Receipt Date: 20060221
  Transmission Date: 20060701
  Serious: No
  Sender: FDA-Public Use
  Company Number: 006751

PATIENT
  Age: 18 Year
  Sex: Male
  Weight: 72.6 kg

DRUGS (2)
  1. CLARAVIS [Suspect]
     Indication: ACNE
     Dosage: 40 MG, BID, ORAL
     Route: 048
     Dates: start: 20051222, end: 20060220
  2. SEROQUEL [Concomitant]

REACTIONS (2)
  - ANHEDONIA [None]
  - DEPRESSION [None]
